FAERS Safety Report 6705408-7 (Version None)
Quarter: 2010Q2

REPORT INFORMATION
  Report Type: 
  Country: None (occurrence: None)
  Receive Date: 20100503
  Receipt Date: 20100421
  Transmission Date: 20101027
  Serious: Yes (Hospitalization)
  Sender: FDA-Public Use
  Company Number: US-BIOGENIDEC-2010BI013312

PATIENT
  Age: 63 Year
  Sex: Female
  Weight: 88 kg

DRUGS (3)
  1. AVONEX [Suspect]
     Indication: MULTIPLE SCLEROSIS
     Route: 030
     Dates: start: 20010605, end: 20030101
  2. AVONEX [Suspect]
     Route: 030
     Dates: start: 20030101
  3. IBUPROFEN [Concomitant]
     Indication: ARTHRITIS
     Dates: start: 20000101

REACTIONS (7)
  - ANTICOAGULATION DRUG LEVEL BELOW THERAPEUTIC [None]
  - ARTHRITIS [None]
  - ARTHRITIS INFECTIVE [None]
  - CYSTITIS [None]
  - GOUT [None]
  - HAEMOGLOBIN DECREASED [None]
  - HIP ARTHROPLASTY [None]
